FAERS Safety Report 12433080 (Version 1)
Quarter: 2016Q2

REPORT INFORMATION
  Report Type: Spontaneous
  Country: JP (occurrence: JP)
  Receive Date: 20160603
  Receipt Date: 20160603
  Transmission Date: 20160815
  Serious: Yes (Other)
  Sender: FDA-Public Use
  Company Number: JP-009507513-1604JPN000589

PATIENT
  Age: 55 Year
  Sex: Male

DRUGS (9)
  1. MAGMITT [Concomitant]
     Active Substance: MAGNESIUM OXIDE
     Dosage: 250 MG, QD
     Route: 048
     Dates: start: 20160229
  2. LENDORMIN [Concomitant]
     Active Substance: BROTIZOLAM
     Dosage: 25 MG, ONCE
     Route: 048
     Dates: start: 20160229
  3. LIXIANA [Concomitant]
     Active Substance: EDOXABAN TOSILATE MONOHYDRATE
     Dosage: 60 MG, ONCE
     Route: 048
     Dates: start: 20160229
  4. ALDACTONE A [Concomitant]
     Active Substance: SPIRONOLACTONE
     Dosage: 25 MG, ONCE
     Route: 048
     Dates: start: 20160229
  5. BAKTAR [Concomitant]
     Active Substance: SULFAMETHOXAZOLE\TRIMETHOPRIM
     Dosage: DAILY DOSAGE UNKNOWN
     Route: 048
     Dates: start: 20160229
  6. DIAMOX SEQUELS [Concomitant]
     Active Substance: ACETAZOLAMIDE
     Dosage: 250 MG, QD
     Route: 048
     Dates: start: 20160229
  7. JANUVIA [Suspect]
     Active Substance: SITAGLIPTIN PHOSPHATE
     Indication: TYPE 2 DIABETES MELLITUS
     Dosage: 25 MG, (HALF OF TABLET), ONCE
     Route: 048
     Dates: start: 20160316, end: 20160329
  8. MAINTATE [Concomitant]
     Active Substance: BISOPROLOL FUMARATE
     Dosage: 0.625 MG, QD
     Route: 048
     Dates: start: 20160229
  9. PREDNISOLONE. [Concomitant]
     Active Substance: PREDNISOLONE
     Dosage: 5 MG, QD
     Route: 048
     Dates: start: 20160229

REACTIONS (5)
  - Platelet count decreased [Unknown]
  - C-reactive protein increased [Unknown]
  - Blood lactate dehydrogenase increased [Unknown]
  - Drug eruption [Recovered/Resolved]
  - Wrong technique in product usage process [Unknown]

NARRATIVE: CASE EVENT DATE: 201603
